FAERS Safety Report 7424097-X (Version None)
Quarter: 2011Q2

REPORT INFORMATION
  Report Type: 
  Country: None (occurrence: None)
  Receive Date: 20110419
  Receipt Date: 20110408
  Transmission Date: 20111010
  Serious: Yes (Other)
  Sender: FDA-Public Use
  Company Number: PHHY2011KR29352

PATIENT
  Age: 67 Year
  Sex: Male

DRUGS (3)
  1. METRONIDAZOLE [Suspect]
     Indication: PERIHEPATIC ABSCESS
     Dosage: 500 MG, TID
     Route: 051
  2. CEFOTAXIME [Concomitant]
     Indication: PERIHEPATIC ABSCESS
     Dosage: 6 G PER DAY
     Route: 051
  3. CEFIXIME [Concomitant]
     Dosage: 200 MG PER DAY

REACTIONS (12)
  - PARAESTHESIA [None]
  - CEREBELLAR SYNDROME [None]
  - ATAXIA [None]
  - GUILLAIN-BARRE SYNDROME [None]
  - DYSARTHRIA [None]
  - PAIN IN EXTREMITY [None]
  - SENSORY LOSS [None]
  - SPLENIC LESION [None]
  - DYSPNOEA [None]
  - HYPERHIDROSIS [None]
  - BLOOD PRESSURE FLUCTUATION [None]
  - SLOW RESPONSE TO STIMULI [None]
